FAERS Safety Report 22324494 (Version 1)
Quarter: 2023Q2

REPORT INFORMATION
  Report Type: Spontaneous
  Country: US (occurrence: None)
  Receive Date: 20230514
  Receipt Date: 20230514
  Transmission Date: 20230722
  Serious: Yes (Other)
  Sender: FDA-Public Use
  Company Number: None

PATIENT
  Age: 8 Year
  Sex: Female
  Weight: 35.1 kg

DRUGS (4)
  1. PREDNISOLONE [Suspect]
     Active Substance: PREDNISOLONE
     Indication: Sinus disorder
     Dosage: FREQUENCY : TWICE A DAY;?
     Route: 048
  2. FLOVENT [Concomitant]
     Active Substance: FLUTICASONE PROPIONATE
  3. ALBUTEROL [Concomitant]
  4. CENTRIZINE [Concomitant]

REACTIONS (3)
  - Sinus disorder [None]
  - Abdominal distension [None]
  - Asthma [None]

NARRATIVE: CASE EVENT DATE: 20230213
